FAERS Safety Report 10630636 (Version 1)
Quarter: 2014Q4

REPORT INFORMATION
  Report Type: Spontaneous
  Country: US (occurrence: US)
  Receive Date: 20141205
  Receipt Date: 20141205
  Transmission Date: 20150529
  Serious: No
  Sender: FDA-Public Use
  Company Number: US-BRISTOL-MYERS SQUIBB COMPANY-21294160

PATIENT
  Age: 49 Year
  Sex: Female

DRUGS (3)
  1. SPRYCEL [Suspect]
     Active Substance: DASATINIB
     Indication: HEPATITIS C
     Route: 048
     Dates: start: 20140722
  2. PEGASYS [Concomitant]
     Active Substance: PEGINTERFERON ALFA-2A
  3. RIBAVIRIN. [Concomitant]
     Active Substance: RIBAVIRIN

REACTIONS (3)
  - Insomnia [Unknown]
  - Overdose [Unknown]
  - Off label use [Unknown]
